FAERS Safety Report 9342353 (Version 3)
Quarter: 2013Q3

REPORT INFORMATION
  Report Type: Spontaneous
  Country: DE (occurrence: DE)
  Receive Date: 20130611
  Receipt Date: 20130920
  Transmission Date: 20140515
  Serious: Yes (Death)
  Sender: FDA-Public Use
  Company Number: DE-ELI_LILLY_AND_COMPANY-DE201306001119

PATIENT
  Sex: Female

DRUGS (14)
  1. FORSTEO [Suspect]
     Dosage: UNK UNK, QD
     Route: 058
     Dates: start: 201212
  2. PREDNISOLONE [Concomitant]
     Dosage: UNK, UNKNOWN
     Route: 065
  3. HYDROMORPHONE [Concomitant]
     Dosage: UNK, UNKNOWN
     Route: 065
  4. PREGABALIN [Concomitant]
     Dosage: UNK, UNKNOWN
     Route: 065
  5. IBUPROFEN [Concomitant]
     Dosage: UNK, UNKNOWN
     Route: 065
  6. RAMIPRIL [Concomitant]
     Indication: HYPERTENSION
     Dosage: UNK, UNKNOWN
     Route: 065
  7. METAMIZOLE [Concomitant]
     Dosage: UNK, UNKNOWN
     Route: 065
  8. LAXOFALK [Concomitant]
     Dosage: UNK, UNKNOWN
     Route: 065
  9. HCT [Concomitant]
     Indication: HYPERTENSION
     Dosage: UNK, UNKNOWN
     Route: 065
  10. CITALOPRAM [Concomitant]
     Dosage: UNK, UNKNOWN
     Route: 065
  11. PANTOPRAZOL [Concomitant]
     Dosage: UNK, UNKNOWN
     Route: 065
  12. SPIRIVA [Concomitant]
     Dosage: UNK, UNKNOWN
     Route: 065
  13. SYMBICORT [Concomitant]
     Dosage: UNK, UNKNOWN
     Route: 065
  14. IVABRADINE [Concomitant]
     Indication: ANGINA PECTORIS
     Dosage: UNK, UNKNOWN
     Route: 065

REACTIONS (2)
  - Cardiac failure acute [Fatal]
  - Chronic obstructive pulmonary disease [Fatal]
